FAERS Safety Report 9130848 (Version 1)
Quarter: 2013Q1

REPORT INFORMATION
  Report Type: Spontaneous
  Country: GB (occurrence: GB)
  Receive Date: 20130301
  Receipt Date: 20130301
  Transmission Date: 20140127
  Serious: Yes (Other)
  Sender: FDA-Public Use
  Company Number: GB-PFIZER INC-2013071535

PATIENT
  Age: 66 Year
  Sex: Female

DRUGS (1)
  1. LYRICA [Suspect]
     Indication: NEURALGIA
     Dosage: 100 MG, 2X/DAY

REACTIONS (5)
  - Suicidal ideation [Unknown]
  - Visual acuity reduced [Unknown]
  - Cataract [Unknown]
  - Fatigue [Unknown]
  - Insomnia [Unknown]
